FAERS Safety Report 22538760 (Version 1)
Quarter: 2023Q2

REPORT INFORMATION
  Report Type: Spontaneous
  Country: FI (occurrence: FI)
  Receive Date: 20230609
  Receipt Date: 20230609
  Transmission Date: 20230721
  Serious: Yes (Other)
  Sender: FDA-Public Use
  Company Number: None

PATIENT
  Age: 20 Year
  Sex: Female

DRUGS (1)
  1. CONCERTA [Suspect]
     Active Substance: METHYLPHENIDATE HYDROCHLORIDE
     Indication: Product used for unknown indication
     Route: 065

REACTIONS (7)
  - Depressed level of consciousness [Unknown]
  - Chills [Unknown]
  - Tremor [Unknown]
  - Nausea [Unknown]
  - Hyperhidrosis [Unknown]
  - Palpitations [Unknown]
  - Restlessness [Unknown]
